FAERS Safety Report 4330431-X (Version None)
Quarter: 2004Q2

REPORT INFORMATION
  Report Type: 
  Country: None (occurrence: None)
  Receive Date: 20040402
  Receipt Date: 20040220
  Transmission Date: 20050107
  Serious: No
  Sender: FDA-Public Use
  Company Number: US-BRISTOL-MYERS SQUIBB COMPANY-12513347

PATIENT
  Age: 58 Year
  Sex: Female
  Weight: 66 kg

DRUGS (3)
  1. HYDREA [Suspect]
     Indication: POLYCYTHAEMIA VERA
     Route: 048
  2. MICARDIS [Concomitant]
  3. BETA BLOCKER [Concomitant]

REACTIONS (2)
  - COCCYDYNIA [None]
  - PAIN IN EXTREMITY [None]
